FAERS Safety Report 5331100-X (Version None)
Quarter: 2007Q2

REPORT INFORMATION
  Report Type: 
  Country: None (occurrence: None)
  Receive Date: 20070522
  Receipt Date: 20070518
  Transmission Date: 20071010
  Serious: Yes (Death)
  Sender: FDA-Public Use
  Company Number: JP-BRISTOL-MYERS SQUIBB COMPANY-13786348

PATIENT
  Age: 69 Year
  Sex: Male

DRUGS (7)
  1. REYATAZ [Suspect]
     Indication: HIV INFECTION
     Route: 048
     Dates: start: 20051018, end: 20060502
  2. ZERIT [Concomitant]
     Route: 048
     Dates: start: 20010514, end: 20041101
  3. STOCRIN [Concomitant]
     Route: 048
     Dates: start: 20030408, end: 20051017
  4. EPIVER [Concomitant]
     Route: 048
     Dates: start: 20010514, end: 20060502
  5. ZIAGEN [Concomitant]
     Route: 048
     Dates: start: 20051018, end: 20060502
  6. VIRACEPT [Concomitant]
     Route: 048
     Dates: start: 20010514, end: 20030408
  7. VIREAD [Concomitant]
     Route: 048
     Dates: start: 20041102, end: 20051017

REACTIONS (1)
  - COMPLETED SUICIDE [None]
